FAERS Safety Report 6303391-X (Version None)
Quarter: 2009Q3

REPORT INFORMATION
  Report Type: 
  Country: None (occurrence: None)
  Receive Date: 20090810
  Receipt Date: 20090729
  Transmission Date: 20100115
  Serious: Yes (Other)
  Sender: FDA-Public Use
  Company Number: AU-ROCHE-646508

PATIENT
  Age: 48 Year
  Sex: Male

DRUGS (1)
  1. TAMIFLU [Suspect]
     Indication: INFLUENZA
     Route: 048

REACTIONS (3)
  - JAUNDICE [None]
  - LIVER FUNCTION TEST ABNORMAL [None]
  - RASH [None]
